FAERS Safety Report 7959320-6 (Version None)
Quarter: 2011Q4

REPORT INFORMATION
  Report Type: 
  Country: None (occurrence: None)
  Receive Date: 20111206
  Receipt Date: 20111128
  Transmission Date: 20120403
  Serious: Yes (Hospitalization)
  Sender: FDA-Public Use
  Company Number: FR-PFIZER INC-2011194578

PATIENT
  Age: 63 Year
  Sex: Male

DRUGS (8)
  1. ASPIRIN [Concomitant]
     Dosage: 75 MG, 1X/DAY
     Route: 048
     Dates: start: 20110501
  2. OMIX [Concomitant]
     Dosage: UNK
     Route: 048
  3. GLYBURIDE [Concomitant]
     Dosage: 0.5 DF, 2X/DAY
     Route: 048
     Dates: start: 20030101, end: 20110706
  4. PERMIXON [Concomitant]
     Route: 048
  5. ATORVASTATIN CALCIUM [Suspect]
     Dosage: 10 MG, DAILY
     Route: 048
     Dates: start: 20110501, end: 20110706
  6. RAMIPRIL [Suspect]
     Dosage: 2.5 MG, 1X/DAY
     Route: 048
     Dates: start: 20110501, end: 20110706
  7. BISOPROLOL FUMARATE [Concomitant]
     Dosage: 5 MG, 1X/DAY
     Route: 048
  8. PLAVIX [Concomitant]
     Dosage: 1 DF, 1X/DAY
     Route: 048
     Dates: start: 20110501

REACTIONS (8)
  - ASCITES [None]
  - ASTHENIA [None]
  - CYTOLYTIC HEPATITIS [None]
  - HAEMOCHROMATOSIS [None]
  - HEPATITIS CHOLESTATIC [None]
  - HEPATIC CIRRHOSIS [None]
  - JAUNDICE [None]
  - HEPATIC ENCEPHALOPATHY [None]
